FAERS Safety Report 9302966 (Version 1)
Quarter: 2013Q2

REPORT INFORMATION
  Report Type: Spontaneous
  Country: IT (occurrence: None)
  Receive Date: 20130516
  Receipt Date: 20130516
  Transmission Date: 20140414
  Serious: Yes (Hospitalization)
  Sender: FDA-Public Use
  Company Number: AUR-APL-2013-04066

PATIENT
  Age: 89 Year
  Sex: Female

DRUGS (2)
  1. CEFTRIAXONE (CEFTRIAXONE) [Suspect]
     Indication: BRONCHITIS
     Dosage: 7 GM, TOTAL, IM
     Route: 030
     Dates: start: 20121009, end: 20121015
  2. COUMADIN (WARFARIN SODIUM) [Suspect]
     Indication: ATRIAL FIBRILLATION
     Dosage: 5 MG, AS REQUIRED, ORAL
     Route: 048
     Dates: start: 20111015, end: 20121015

REACTIONS (7)
  - Nausea [None]
  - Vertigo positional [None]
  - Overdose [None]
  - Inflammation [None]
  - Chondrocalcinosis [None]
  - Candida infection [None]
  - Renal failure chronic [None]
